FAERS Safety Report 4738320-3 (Version None)
Quarter: 2005Q3

REPORT INFORMATION
  Report Type: 
  Country: None (occurrence: None)
  Receive Date: 20050809
  Receipt Date: 20050728
  Transmission Date: 20060218
  Serious: Yes (Hospitalization)
  Sender: FDA-Public Use
  Company Number: PHBS2005JP11216

PATIENT
  Age: 52 Year
  Sex: Female
  Weight: 49 kg

DRUGS (21)
  1. TEGRETOL [Suspect]
     Indication: BIPOLAR I DISORDER
     Dosage: 50 MG/DAY
     Route: 048
     Dates: end: 20050112
  2. TEGRETOL [Suspect]
     Dosage: 150 MG/DAY
     Route: 048
     Dates: start: 20050113, end: 20050118
  3. PREDNISOLONE [Concomitant]
     Indication: RHEUMATOID ARTHRITIS
     Dosage: 10 MG/DAY
     Route: 048
     Dates: start: 20041006
  4. PREDNISOLONE [Concomitant]
     Dosage: 9 MG/DAY
     Route: 048
     Dates: start: 20050421
  5. PREDNISOLONE [Concomitant]
     Dosage: 8 MG/DAY
     Route: 048
     Dates: start: 20050615
  6. VOLTAREN [Concomitant]
     Indication: RHEUMATOID ARTHRITIS
     Dosage: 25 MG/DAY
     Route: 048
     Dates: start: 20041006
  7. AZULFIDINE [Concomitant]
     Indication: RHEUMATOID ARTHRITIS
     Dosage: 1 G/DAY
     Route: 065
     Dates: start: 20041124
  8. LOXONIN [Concomitant]
     Indication: RHEUMATOID ARTHRITIS
     Dosage: 120 MG/DAY
     Route: 048
     Dates: start: 20041124
  9. ADRENAL HORMONE PREPARATIONS [Concomitant]
     Indication: RHEUMATOID ARTHRITIS
  10. MOBIC [Concomitant]
     Indication: RHEUMATOID ARTHRITIS
     Dosage: 10 MG/DAY
     Route: 048
     Dates: start: 20041006
  11. CLOXAZOLEM [Concomitant]
     Dosage: 3 MG
     Route: 065
     Dates: start: 20050113, end: 20050125
  12. REMICADE [Suspect]
     Indication: RHEUMATOID ARTHRITIS
     Dosage: 3 MG/KG/DAY
     Route: 042
     Dates: start: 20041006
  13. REMICADE [Suspect]
     Dosage: 3 MG/KG/DAY
     Route: 042
     Dates: start: 20041020
  14. DIAZEPAM [Suspect]
     Indication: BIPOLAR I DISORDER
     Dosage: 2 MG/DAY
     Route: 048
     Dates: start: 20041007, end: 20050112
  15. ARTANE [Suspect]
     Indication: BIPOLAR I DISORDER
     Dosage: 1 MG/DAY
     Route: 048
     Dates: end: 20050112
  16. PZC [Suspect]
     Indication: BIPOLAR I DISORDER
     Dosage: 1 MG/DAY
     Route: 048
     Dates: end: 20050112
  17. RHEUMATREX [Concomitant]
     Dosage: 6 MG IN 1 WEEK
     Dates: start: 20040304
  18. RHEUMATREX [Concomitant]
     Dosage: 8 MG IN 1 WEEK
     Dates: start: 20040401
  19. RHEUMATREX [Concomitant]
     Dosage: 10.5 MG IN 1 WEEK
     Dates: start: 20040527
  20. RHEUMATREX [Concomitant]
     Dosage: 13 MG IN 1 WEEK
     Dates: start: 20040624
  21. RHEUMATREX [Concomitant]
     Dosage: 8 MG IN 1 WEEK
     Dates: start: 20040930

REACTIONS (14)
  - ABNORMAL BEHAVIOUR [None]
  - AFFECT LABILITY [None]
  - BLOOD PRESSURE INCREASED [None]
  - CONFUSIONAL STATE [None]
  - DELIRIUM [None]
  - GRUNTING [None]
  - HEADACHE [None]
  - MANIA [None]
  - MEMORY IMPAIRMENT [None]
  - MENTAL DISORDER [None]
  - POLLAKIURIA [None]
  - PSYCHIATRIC SYMPTOM [None]
  - RESTLESSNESS [None]
  - URINARY INCONTINENCE [None]
